FAERS Safety Report 5382262-X (Version None)
Quarter: 2007Q3

REPORT INFORMATION
  Report Type: 
  Country: None (occurrence: None)
  Receive Date: 20070709
  Receipt Date: 20070629
  Transmission Date: 20080115
  Serious: Yes (Other)
  Sender: FDA-Public Use
  Company Number: CN-PFIZER INC-2007048782

PATIENT
  Age: 67 Year
  Sex: Male

DRUGS (8)
  1. ESTRACYT [Suspect]
     Indication: PROSTATE CANCER
     Route: 048
  2. CORTICOSTEROIDS [Concomitant]
  3. BISPHOSPHONATES [Concomitant]
  4. CALCIUM CHLORIDE [Concomitant]
  5. VITAMIN D [Concomitant]
  6. VITAMIN B [Concomitant]
  7. IMMUNOSUPPRESSIVE AGENTS [Concomitant]
  8. DEXAMETHASONE [Concomitant]
     Dates: start: 20070101

REACTIONS (3)
  - GASTROINTESTINAL DISORDER [None]
  - OEDEMA [None]
  - WHITE BLOOD CELL COUNT INCREASED [None]
